FAERS Safety Report 8345938-8 (Version None)
Quarter: 2012Q2

REPORT INFORMATION
  Report Type: 
  Country: None (occurrence: None)
  Receive Date: 20120507
  Receipt Date: 20120424
  Transmission Date: 20120825
  Serious: Yes (Life-Threatening, Disabling, Other)
  Sender: FDA-Public Use
  Company Number: 2010MA005105

PATIENT
  Sex: Female
  Weight: 99.7913 kg

DRUGS (53)
  1. ASPIRIN [Concomitant]
  2. LOPRESSOR [Concomitant]
  3. MARIJUANA [Concomitant]
  4. METRONIDAZOLE [Concomitant]
  5. NOVOLIN R [Concomitant]
  6. PLAVIX [Concomitant]
  7. PREVACID [Concomitant]
  8. DARVOCET-N 100 [Concomitant]
  9. FLEXERIL [Concomitant]
  10. FLUCONAZOLE [Concomitant]
  11. GABAPENTIN [Concomitant]
  12. IMDUR [Concomitant]
  13. ISOSORBIDE DINITRATE [Concomitant]
  14. LANTUS [Concomitant]
  15. LYRICA [Concomitant]
  16. METOPROLOL TARTRATE [Concomitant]
  17. NITROGLYCERIN [Concomitant]
  18. ROBAXIN [Concomitant]
  19. VESICARE [Concomitant]
  20. PATANOL [Concomitant]
  21. PYROXENE [Concomitant]
  22. ZOFRAN [Concomitant]
  23. METOCLOPRAMIDE [Suspect]
     Indication: IMPAIRED GASTRIC EMPTYING
     Dosage: 10 MG;PO
     Route: 048
     Dates: start: 20070713, end: 20090501
  24. METOCLOPRAMIDE [Suspect]
     Indication: NAUSEA
     Dosage: 10 MG;PO
     Route: 048
     Dates: start: 20070713, end: 20090501
  25. ACYCLOVIR [Concomitant]
  26. ANTIVERT [Concomitant]
  27. COMPAZINE [Concomitant]
  28. FLU SHOT [Concomitant]
  29. HYDROCHLOROTHIAZIDE [Concomitant]
  30. HYDROXYZINE [Concomitant]
  31. METHOCARBAMOL [Concomitant]
  32. NEURONTIN [Concomitant]
  33. PAROXETINE [Concomitant]
  34. TRAVATAN [Concomitant]
  35. LORTAB [Concomitant]
  36. MECLIZINE [Concomitant]
  37. NASACORT [Concomitant]
  38. PHENERGAN DM [Concomitant]
  39. ZITHROMAX [Concomitant]
  40. CLONAZEPAM [Concomitant]
  41. SALSALATE [Concomitant]
  42. VITAMIN B-12 [Concomitant]
  43. CIPROFLOXACIN [Concomitant]
  44. COMBIVENT [Concomitant]
  45. COZAAR [Concomitant]
  46. PAXIL [Concomitant]
  47. SIMVASTATIN [Concomitant]
  48. VISTARIL [Concomitant]
  49. VITAMIN E [Concomitant]
  50. PROCHLORPERAZINE [Concomitant]
  51. PROPOXYPHENE HCL AND ACETAMINOPHEN [Concomitant]
  52. TETRABENAZINE [Concomitant]
  53. ZOCOR [Concomitant]

REACTIONS (36)
  - DIARRHOEA [None]
  - VERTIGO [None]
  - CORONARY ARTERY RESTENOSIS [None]
  - INCORRECT DOSE ADMINISTERED [None]
  - WEIGHT DECREASED [None]
  - TINNITUS [None]
  - CORONARY ARTERY DISEASE [None]
  - IN-STENT CORONARY ARTERY RESTENOSIS [None]
  - INJURY [None]
  - DIVERTICULUM [None]
  - DIZZINESS [None]
  - BRADYCARDIA [None]
  - EMOTIONAL DISORDER [None]
  - VENTRICULAR TACHYCARDIA [None]
  - INITIAL INSOMNIA [None]
  - MITRAL VALVE INCOMPETENCE [None]
  - TARDIVE DYSKINESIA [None]
  - EXTRAPYRAMIDAL DISORDER [None]
  - ANXIETY [None]
  - DEPRESSION [None]
  - TREATMENT NONCOMPLIANCE [None]
  - ATHETOSIS [None]
  - ECONOMIC PROBLEM [None]
  - GASTRITIS [None]
  - IMPAIRED GASTRIC EMPTYING [None]
  - VENTRICULAR FIBRILLATION [None]
  - ANGINA UNSTABLE [None]
  - HYPERTENSION [None]
  - COLONIC POLYP [None]
  - DYSKINESIA [None]
  - MENIERE'S DISEASE [None]
  - ASTHENIA [None]
  - CHOREOATHETOSIS [None]
  - NEUROPATHY PERIPHERAL [None]
  - CHOLELITHIASIS [None]
  - ATRIOVENTRICULAR BLOCK [None]
